FAERS Safety Report 24677057 (Version 1)
Quarter: 2024Q4

REPORT INFORMATION
  Report Type: Spontaneous
  Country: US (occurrence: US)
  Receive Date: 20241129
  Receipt Date: 20241129
  Transmission Date: 20250114
  Serious: Yes (Other)
  Sender: BRISTOL-MYERS SQUIBB COMPANY
  Company Number: US-BRISTOL-MYERS SQUIBB COMPANY-2024-183465

PATIENT
  Age: 78 Year
  Sex: Female

DRUGS (3)
  1. ORENCIA [Suspect]
     Active Substance: ABATACEPT
     Indication: Psoriatic arthropathy
     Route: 058
     Dates: start: 202411
  2. RASUVO [Concomitant]
     Active Substance: METHOTREXATE SODIUM
  3. RASUVO [Concomitant]
     Active Substance: METHOTREXATE SODIUM

REACTIONS (3)
  - Vertigo [Unknown]
  - Dizziness [Unknown]
  - Cataract [Unknown]
